FAERS Safety Report 9812791 (Version 1)
Quarter: 2014Q1

REPORT INFORMATION
  Report Type: Spontaneous
  Country: IT (occurrence: IT)
  Receive Date: 20140113
  Receipt Date: 20140113
  Transmission Date: 20141002
  Serious: Yes (Life-Threatening, Hospitalization)
  Sender: FDA-Public Use
  Company Number: IT-MYLANLABS-2014S1000364

PATIENT
  Age: 40 Year
  Sex: Male
  Weight: 110 kg

DRUGS (6)
  1. BISOPROLOL [Suspect]
     Indication: SUICIDE ATTEMPT
     Route: 048
  2. PHENOBARBITAL [Suspect]
     Indication: SUICIDE ATTEMPT
     Route: 048
  3. RISPERIDONE [Suspect]
     Indication: SUICIDE ATTEMPT
     Route: 048
  4. LORAZEPAM [Suspect]
     Indication: SUICIDE ATTEMPT
     Route: 048
  5. CLOTIAZEPAM [Suspect]
     Indication: SUICIDE ATTEMPT
     Route: 048
  6. OLANZAPINE [Concomitant]
     Indication: BORDERLINE PERSONALITY DISORDER
     Dosage: 5 MG/DAY
     Route: 065

REACTIONS (4)
  - Stress cardiomyopathy [Recovered/Resolved]
  - Coma [Recovered/Resolved]
  - Suicide attempt [Recovered/Resolved]
  - Respiratory acidosis [Recovered/Resolved]
